FAERS Safety Report 9459672 (Version 1)
Quarter: 2013Q3

REPORT INFORMATION
  Report Type: Spontaneous
  Country: BR (occurrence: BR)
  Receive Date: 20130815
  Receipt Date: 20130815
  Transmission Date: 20140515
  Serious: Yes (Hospitalization)
  Sender: FDA-Public Use
  Company Number: BR-BAYER-2013-095757

PATIENT
  Age: 39 Year
  Sex: Female

DRUGS (1)
  1. MIRENA [Suspect]
     Indication: CONTRACEPTION
     Dosage: 20 ?G, CONT
     Route: 015
     Dates: start: 20120910, end: 201303

REACTIONS (8)
  - Weight increased [Not Recovered/Not Resolved]
  - Skin striae [Not Recovered/Not Resolved]
  - Pigmentation disorder [Not Recovered/Not Resolved]
  - Premenstrual syndrome [Recovered/Resolved]
  - Depression [Recovered/Resolved]
  - Convulsion [Recovered/Resolved]
  - Cardiac arrest [Recovered/Resolved]
  - Acne [Recovered/Resolved]
